FAERS Safety Report 16196719 (Version 1)
Quarter: 2019Q2

REPORT INFORMATION
  Report Type: Spontaneous
  Country: RU (occurrence: RU)
  Receive Date: 20190415
  Receipt Date: 20190415
  Transmission Date: 20190711
  Serious: Yes (Hospitalization, Other)
  Sender: FDA-Public Use
  Company Number: RU-BAYER-2019-072092

PATIENT
  Age: 58 Year
  Sex: Male

DRUGS (15)
  1. PANTOPRAZOLE [Concomitant]
     Active Substance: PANTOPRAZOLE
     Dosage: 20 MG, UNK
     Dates: start: 201706
  2. EPLERENONE. [Concomitant]
     Active Substance: EPLERENONE
     Indication: CARDIAC FAILURE CHRONIC
     Dosage: 50 MG, UNK
  3. KETOPROFEN. [Suspect]
     Active Substance: KETOPROFEN
     Indication: OSTEOCHONDROSIS
     Dosage: 100 MG, UNK
     Route: 030
     Dates: start: 201706, end: 2017
  4. ACETYLSALICYLIC ACID (CARDIO) [Suspect]
     Active Substance: ASPIRIN
     Dosage: 100 MG, UNK
  5. CLOPIDOGREL [Concomitant]
     Active Substance: CLOPIDOGREL BISULFATE
     Indication: CARDIAC FAILURE CHRONIC
     Dosage: 75 MG, UNK
  6. ENOXAPARIN [Concomitant]
     Active Substance: ENOXAPARIN
     Indication: CARDIAC FAILURE CHRONIC
  7. ROSUVASTATIN. [Concomitant]
     Active Substance: ROSUVASTATIN
     Indication: CARDIAC FAILURE CHRONIC
     Dosage: 20 MG, UNK
  8. MELOXICAM. [Suspect]
     Active Substance: MELOXICAM
     Indication: OSTEOCHONDROSIS
     Dosage: UNK
     Dates: start: 2017, end: 2017
  9. RABEPRAZOLE [Concomitant]
     Active Substance: RABEPRAZOLE
  10. EPLERENONE. [Concomitant]
     Active Substance: EPLERENONE
     Indication: CARDIAC FAILURE CHRONIC
     Dates: start: 20160912
  11. RAMIPRIL. [Concomitant]
     Active Substance: RAMIPRIL
     Indication: CARDIAC FAILURE CHRONIC
  12. MELOXICAM. [Suspect]
     Active Substance: MELOXICAM
     Indication: OSTEOCHONDROSIS
     Dosage: 15 MG, UNK
     Dates: start: 2017, end: 2017
  13. MELOXICAM. [Suspect]
     Active Substance: MELOXICAM
     Indication: OSTEOCHONDROSIS
     Dosage: 15 MG, UNK
     Route: 030
     Dates: start: 201706, end: 2017
  14. BISOPROLOL [Concomitant]
     Active Substance: BISOPROLOL
     Indication: CARDIAC FAILURE CHRONIC
  15. RAMIPRIL. [Concomitant]
     Active Substance: RAMIPRIL
     Indication: CARDIAC FAILURE CHRONIC
     Dosage: 5 MG, UNK

REACTIONS (6)
  - Cardiac failure chronic [Recovering/Resolving]
  - Dyspnoea [Recovering/Resolving]
  - Angina unstable [Recovering/Resolving]
  - Arterial stenosis [Recovering/Resolving]
  - Stenosis [Recovering/Resolving]
  - Exercise tolerance decreased [Recovering/Resolving]

NARRATIVE: CASE EVENT DATE: 201611
